FAERS Safety Report 6553656-1 (Version None)
Quarter: 2010Q1

REPORT INFORMATION
  Report Type: 
  Country: None (occurrence: None)
  Receive Date: 20100127
  Receipt Date: 20100114
  Transmission Date: 20100710
  Serious: Yes (Other)
  Sender: FDA-Public Use
  Company Number: PHHY2010JP02828

PATIENT
  Sex: Male

DRUGS (11)
  1. AMN107 AMN+CAP [Suspect]
     Indication: CHRONIC MYELOID LEUKAEMIA
     Dosage: 400 MG DAILY
     Route: 048
     Dates: start: 20090621, end: 20090716
  2. AMN107 AMN+CAP [Suspect]
     Dosage: 600 MG DAILY
     Route: 048
     Dates: start: 20090717, end: 20090807
  3. AMN107 AMN+CAP [Suspect]
     Dosage: 800 MG DAILY
     Route: 048
     Dates: start: 20090808, end: 20090801
  4. AMN107 AMN+CAP [Suspect]
     Dosage: 800 MG DAILY
     Route: 048
     Dates: start: 20100112
  5. TAKEPRON [Concomitant]
     Indication: PROPHYLAXIS
     Dosage: 15 MG, UNK
     Route: 048
     Dates: start: 20070620
  6. MIYA-BM [Concomitant]
     Dosage: 3 DF, UNK
     Route: 048
     Dates: start: 20070703
  7. AMLODIPINE [Concomitant]
     Dosage: 5 MG, UNK
     Route: 048
     Dates: start: 20070301
  8. BLOPRESS [Concomitant]
     Dosage: 4 MG, UNK
     Route: 048
     Dates: start: 20070301
  9. LIPIDIL [Concomitant]
     Dosage: 100 MG, UNK
     Route: 048
     Dates: start: 20070301
  10. PREDONINE [Concomitant]
     Dosage: 5 MG, UNK
     Route: 048
     Dates: start: 20070620
  11. ALLELOCK [Concomitant]
     Dosage: 10 MG, UNK
     Route: 048
     Dates: start: 20070606

REACTIONS (5)
  - CATHETERISATION CARDIAC [None]
  - CHEST PAIN [None]
  - INTRA-AORTIC BALLOON PLACEMENT [None]
  - MYOCARDIAL INFARCTION [None]
  - STENT PLACEMENT [None]
